FAERS Safety Report 17517918 (Version 6)
Quarter: 2022Q1

REPORT INFORMATION
  Report Type: Report from Study
  Country: AU (occurrence: AU)
  Receive Date: 20200309
  Receipt Date: 20220120
  Transmission Date: 20220423
  Serious: Yes (Hospitalization)
  Sender: FDA-Public Use
  Company Number: AU-JNJFOC-20200237791

PATIENT
  Age: 35 Year
  Sex: Female

DRUGS (2)
  1. STELARA [Suspect]
     Active Substance: USTEKINUMAB
     Indication: Crohn^s disease
     Route: 058
     Dates: start: 20200107
  2. STELARA [Suspect]
     Active Substance: USTEKINUMAB

REACTIONS (13)
  - Crohn^s disease [Not Recovered/Not Resolved]
  - Dyspnoea [Unknown]
  - Throat irritation [Unknown]
  - Painful respiration [Unknown]
  - Wheezing [Unknown]
  - Renal pain [Unknown]
  - Skin infection [Recovered/Resolved]
  - Headache [Unknown]
  - Fatigue [Unknown]
  - Pruritus [Recovered/Resolved]
  - Product administration error [Unknown]
  - Adverse event [Unknown]
  - Tonsillitis [Recovered/Resolved]

NARRATIVE: CASE EVENT DATE: 20200101
